FAERS Safety Report 4952745-2 (Version None)
Quarter: 2006Q1

REPORT INFORMATION
  Report Type: 
  Country: None (occurrence: None)
  Receive Date: 20060324
  Receipt Date: 20060303
  Transmission Date: 20060701
  Serious: Yes (Other)
  Sender: FDA-Public Use
  Company Number: PHBS2006JP03614

PATIENT

DRUGS (3)
  1. RHEUMATREX [Suspect]
     Route: 048
  2. PREDONINE [Suspect]
     Dosage: 4 MG/DAY
  3. VOLTAREN [Suspect]
     Indication: MUSCULOSKELETAL PAIN
     Dosage: UNK, UNK
     Route: 048

REACTIONS (1)
  - HAEMORRHAGIC DIATHESIS [None]
